FAERS Safety Report 10192905 (Version 2)
Quarter: 2014Q2

REPORT INFORMATION
  Report Type: Report from Study
  Country: US (occurrence: US)
  Receive Date: 20140523
  Receipt Date: 20140605
  Transmission Date: 20141212
  Serious: Yes (Hospitalization, Other)
  Sender: FDA-Public Use
  Company Number: US-ABBVIE-14P-163-1238150-00

PATIENT
  Age: 55 Year
  Sex: Male

DRUGS (4)
  1. HUMIRA [Suspect]
     Indication: CROHN^S DISEASE
     Route: 058
     Dates: start: 2011
  2. HUMIRA [Suspect]
     Route: 058
  3. HYDROCODONE/ACETAMINOPHEN [Suspect]
     Indication: BACK PAIN
     Dosage: 5/325 MG PRN
     Dates: start: 201404
  4. HYDROMORPHONE [Suspect]
     Indication: BACK PAIN
     Dates: start: 20140422

REACTIONS (17)
  - Crohn^s disease [Recovering/Resolving]
  - Nephrolithiasis [Recovered/Resolved]
  - Alopecia [Unknown]
  - Hair texture abnormal [Unknown]
  - Vitamin D deficiency [Recovering/Resolving]
  - Vitamin B12 deficiency [Recovering/Resolving]
  - Back pain [Unknown]
  - Sciatica [Unknown]
  - Nerve compression [Unknown]
  - Nausea [Unknown]
  - Drug ineffective [Unknown]
  - Inappropriate schedule of drug administration [Unknown]
  - Crohn^s disease [Recovered/Resolved]
  - Poor quality sleep [Unknown]
  - Haemorrhagic diathesis [Unknown]
  - Inappropriate schedule of drug administration [Unknown]
  - Abdominal pain [Not Recovered/Not Resolved]
